FAERS Safety Report 12071118 (Version 1)
Quarter: 2016Q1

REPORT INFORMATION
  Report Type: Spontaneous
  Country: US (occurrence: US)
  Receive Date: 20160211
  Receipt Date: 20160211
  Transmission Date: 20160526
  Serious: No
  Sender: FDA-Public Use
  Company Number: CHPA2016US002034

PATIENT
  Age: 52 Year
  Sex: Female

DRUGS (2)
  1. VOLTAREN [Suspect]
     Active Substance: DICLOFENAC SODIUM
     Indication: CARPAL TUNNEL SYNDROME
     Dosage: TIP OF THE FINGER, UNK
     Route: 061
     Dates: start: 2015
  2. VOLTAREN [Suspect]
     Active Substance: DICLOFENAC SODIUM
     Indication: INFLAMMATION

REACTIONS (3)
  - Expired product administered [Unknown]
  - Wrong technique in product usage process [Unknown]
  - Product use issue [Unknown]

NARRATIVE: CASE EVENT DATE: 2015
